FAERS Safety Report 6022933-5 (Version None)
Quarter: 2008Q4

REPORT INFORMATION
  Report Type: 
  Country: None (occurrence: None)
  Receive Date: 20081222
  Receipt Date: 20080909
  Transmission Date: 20090506
  Serious: No
  Sender: FDA-Public Use
  Company Number: ALL1-2008-02559

PATIENT
  Age: 9 Year
  Sex: Male
  Weight: 43.1 kg

DRUGS (6)
  1. VYVANSE [Suspect]
     Indication: ATTENTION DEFICIT/HYPERACTIVITY DISORDER
     Dosage: 30 MG, 1X/DAY:QD, ORAL : 20 MG, 1X/DAY:QD, ORAL
     Route: 048
     Dates: start: 20080501, end: 20080601
  2. VYVANSE [Suspect]
     Indication: ATTENTION DEFICIT/HYPERACTIVITY DISORDER
     Dosage: 30 MG, 1X/DAY:QD, ORAL : 20 MG, 1X/DAY:QD, ORAL
     Route: 048
     Dates: start: 20080804
  3. ZYRTEC [Concomitant]
  4. SINGULAIR [Concomitant]
  5. NASONEX [Concomitant]
  6. ALLERGY MEDICATION [Concomitant]

REACTIONS (3)
  - BRADYPHRENIA [None]
  - DISTURBANCE IN ATTENTION [None]
  - LOGORRHOEA [None]
